FAERS Safety Report 5332297-8 (Version None)
Quarter: 2007Q2

REPORT INFORMATION
  Report Type: 
  Country: None (occurrence: None)
  Receive Date: 20070523
  Receipt Date: 20070516
  Transmission Date: 20071010
  Serious: Yes (Life-Threatening, Hospitalization)
  Sender: FDA-Public Use
  Company Number: AU-MERCK-0705USA03211

PATIENT
  Age: 75 Year
  Sex: Male

DRUGS (11)
  1. PRINIVIL [Suspect]
     Route: 048
     Dates: end: 20060401
  2. FORMIN (METFORMIN HYDROCHLORIDE) [Suspect]
     Route: 065
     Dates: end: 20060401
  3. FUROSEMIDE [Suspect]
     Route: 065
     Dates: end: 20060401
  4. DIGOXIN [Concomitant]
     Route: 065
  5. WARFARIN SODIUM [Concomitant]
     Route: 065
  6. ALLOPURINOL [Concomitant]
     Route: 065
  7. ATORVASTATIN [Concomitant]
     Route: 065
  8. FERROUS SULFATE AND FOLIC ACID [Concomitant]
     Route: 065
  9. DARBEPOETIN ALFA [Concomitant]
     Route: 065
  10. HYDRALAZINE HYDROCHLORIDE [Concomitant]
     Route: 065
  11. INSULIN, BIPHASIC ISOPHANE [INJECTION] [Concomitant]
     Route: 065

REACTIONS (5)
  - DIARRHOEA [None]
  - LACTIC ACIDOSIS [None]
  - ORAL INTAKE REDUCED [None]
  - RENAL FAILURE ACUTE [None]
  - VOMITING [None]
